FAERS Safety Report 13529062 (Version 1)
Quarter: 2017Q2

REPORT INFORMATION
  Report Type: Spontaneous
  Country: RO (occurrence: RO)
  Receive Date: 20170509
  Receipt Date: 20170509
  Transmission Date: 20170830
  Serious: Yes (Hospitalization)
  Sender: FDA-Public Use
  Company Number: RO-ABBVIE-17P-135-1970226-00

PATIENT
  Age: 29 Year
  Sex: Male

DRUGS (1)
  1. DEPAKINE [Suspect]
     Active Substance: VALPROATE SODIUM
     Indication: EPILEPSY
     Route: 065

REACTIONS (2)
  - Toxicity to various agents [Not Recovered/Not Resolved]
  - Quadriplegia [Unknown]
